FAERS Safety Report 4961237-6 (Version None)
Quarter: 2006Q1

REPORT INFORMATION
  Report Type: 
  Country: None (occurrence: None)
  Receive Date: 20060329
  Receipt Date: 20060315
  Transmission Date: 20060701
  Serious: Yes (Hospitalization)
  Sender: FDA-Public Use
  Company Number: 2006020005

PATIENT
  Age: 69 Year
  Sex: Female

DRUGS (10)
  1. DORAL [Suspect]
     Indication: INSOMNIA
     Dosage: 15 MG (1 IN 1 D), ORAL
     Route: 048
     Dates: start: 20051201, end: 20051212
  2. LENDORM [Suspect]
     Indication: INSOMNIA
     Dosage: 0.25 MG (1 IN 1 D)
     Dates: end: 20051217
  3. ZANTAC [Concomitant]
  4. PREDONINE (PRENISOLONE) [Concomitant]
  5. ALFACALCIDOL (ALFACALCIDOL) [Concomitant]
  6. MECOBALAMIN (MECOBALAMIN) [Concomitant]
  7. BLOPRESS (CANDESARTAN CILEXETIL) [Concomitant]
  8. AMLODIPINE BESYLATE [Concomitant]
  9. THEO-DUR [Concomitant]
  10. TSUKUSHI AM [Concomitant]

REACTIONS (2)
  - DEPRESSED LEVEL OF CONSCIOUSNESS [None]
  - DISORIENTATION [None]
